FAERS Safety Report 8343298-X (Version None)
Quarter: 2012Q2

REPORT INFORMATION
  Report Type: 
  Country: None (occurrence: None)
  Receive Date: 20120508
  Receipt Date: 20120501
  Transmission Date: 20120825
  Serious: Yes (Other)
  Sender: FDA-Public Use
  Company Number: PHHY2012IL037388

PATIENT
  Age: 33 Year
  Sex: Male

DRUGS (7)
  1. BLEOMYCIN SULFATE [Suspect]
     Dosage: 80 MG/M2, UNK
  2. DOXORUBICIN HCL [Suspect]
     Indication: HODGKIN'S DISEASE
     Dosage: 25 MG/M2, UNK
  3. BLEOMYCIN SULFATE [Suspect]
     Indication: HODGKIN'S DISEASE
     Dosage: 10 MG/M2, UNK
  4. RADIOTHERAPY [Concomitant]
     Indication: HODGKIN'S DISEASE
     Dosage: 2520 MG/M2, UNK
  5. VINBLASTINE SULFATE [Suspect]
     Indication: HODGKIN'S DISEASE
     Dosage: 6 G/M2
  6. DEXAMETHASONE [Suspect]
     Indication: HODGKIN'S DISEASE
     Dosage: 20 MG, UNK
  7. DACARBAZINE [Suspect]
     Indication: HODGKIN'S DISEASE
     Dosage: 375 MG/M2, UNK

REACTIONS (1)
  - RESPIRATORY DISORDER [None]
